FAERS Safety Report 9379921 (Version 1)
Quarter: 2013Q3

REPORT INFORMATION
  Report Type: Spontaneous
  Country: US (occurrence: US)
  Receive Date: 20130702
  Receipt Date: 20130702
  Transmission Date: 20140515
  Serious: Yes (Other)
  Sender: FDA-Public Use
  Company Number: US-LUNDBECK-DKLU1092072

PATIENT
  Sex: 0

DRUGS (1)
  1. SABRIL (TABLET) [Suspect]
     Indication: DRUG DEPENDENCE
     Route: 048

REACTIONS (1)
  - Hepatitis acute [Unknown]
